FAERS Safety Report 6526163-X (Version None)
Quarter: 2009Q4

REPORT INFORMATION
  Report Type: 
  Country: None (occurrence: None)
  Receive Date: 20091228
  Receipt Date: 20091215
  Transmission Date: 20100525
  Serious: Yes (Other)
  Sender: FDA-Public Use
  Company Number: 233951J09USA

PATIENT
  Age: 55 Year
  Sex: Female

DRUGS (1)
  1. REBIF [Suspect]
     Indication: MULTIPLE SCLEROSIS
     Dosage: 44 MCG, 3 IN 1 WEEKS, SUBCUTANEOUS
     Route: 058
     Dates: start: 20030929

REACTIONS (9)
  - BLEEDING VARICOSE VEIN [None]
  - BURNING SENSATION [None]
  - FATIGUE [None]
  - HYPOAESTHESIA [None]
  - LIMB INJURY [None]
  - OPTIC NEURITIS [None]
  - PARAESTHESIA [None]
  - STASIS DERMATITIS [None]
  - THROMBOSIS [None]
